FAERS Safety Report 5123386-1 (Version None)
Quarter: 2006Q4

REPORT INFORMATION
  Report Type: 
  Country: None (occurrence: None)
  Receive Date: 20061005
  Receipt Date: 20060922
  Transmission Date: 20070319
  Serious: Yes (Hospitalization)
  Sender: FDA-Public Use
  Company Number: 2006SP002870

PATIENT
  Age: 53 Year
  Sex: Male
  Weight: 75 kg

DRUGS (1)
  1. PEG-INTRON [Suspect]
     Indication: MALIGNANT MELANOMA
     Dosage: 50 MCG; QW

REACTIONS (1)
  - LYMPHADENOPATHY [None]
